FAERS Safety Report 11132996 (Version 5)
Quarter: 2018Q3

REPORT INFORMATION
  Report Type: Report from Study
  Country: CO (occurrence: CO)
  Receive Date: 20150522
  Receipt Date: 20180830
  Transmission Date: 20181010
  Serious: No
  Sender: FDA-Public Use
  Company Number: PHHY2015CO055200

PATIENT
  Age: 39 Year
  Sex: Female
  Weight: 70 kg

DRUGS (5)
  1. TASIGNA [Suspect]
     Active Substance: NILOTINIB
     Dosage: 150 MG, QID
     Route: 048
  2. TASIGNA [Suspect]
     Active Substance: NILOTINIB
     Indication: CHRONIC MYELOID LEUKAEMIA
     Dosage: 200 MG, UNK
     Route: 048
  3. TASIGNA [Suspect]
     Active Substance: NILOTINIB
     Dosage: 2 DF, Q12H (150 MG EACH)
     Route: 048
  4. TASIGNA [Suspect]
     Active Substance: NILOTINIB
     Dosage: 400 MG, QD
     Route: 048
  5. TASIGNA [Suspect]
     Active Substance: NILOTINIB
     Dosage: 2 DF OF 150 MG, Q12H
     Route: 048
     Dates: start: 20110222

REACTIONS (15)
  - Crying [Unknown]
  - Pain [Unknown]
  - Fatigue [Unknown]
  - Hypersensitivity [Not Recovered/Not Resolved]
  - Gait inability [Unknown]
  - Arthralgia [Unknown]
  - Mass [Not Recovered/Not Resolved]
  - Malaise [Unknown]
  - Headache [Unknown]
  - Peripheral swelling [Recovering/Resolving]
  - Pain in extremity [Unknown]
  - Muscle spasms [Recovering/Resolving]
  - Pruritus [Unknown]
  - Inappropriate schedule of drug administration [Unknown]
  - Swelling [Unknown]

NARRATIVE: CASE EVENT DATE: 20160404
